FAERS Safety Report 6895671-4 (Version None)
Quarter: 2010Q3

REPORT INFORMATION
  Report Type: 
  Country: None (occurrence: None)
  Receive Date: 20100730
  Receipt Date: 20100730
  Transmission Date: 20110219
  Serious: Yes (Other)
  Sender: FDA-Public Use
  Company Number: None

PATIENT
  Age: 47 Year
  Sex: Male
  Weight: 115.6672 kg

DRUGS (2)
  1. PEGASYS [Suspect]
     Indication: HEPATITIS C
     Dosage: INJECTION 1X / WEEK SQ
     Route: 058
     Dates: start: 20080606, end: 20081217
  2. RIBAVIRIN [Suspect]
     Indication: HEPATITIS C
     Dosage: 2 PILLS PER DAY PO
     Route: 048
     Dates: start: 20080606, end: 20081217

REACTIONS (19)
  - FATIGUE [None]
  - GAIT DISTURBANCE [None]
  - HEPATIC CIRRHOSIS [None]
  - IRRITABILITY [None]
  - MENTAL DISORDER [None]
  - MULTIPLE INJURIES [None]
  - NAIL DISORDER [None]
  - OEDEMA PERIPHERAL [None]
  - ONYCHOMADESIS [None]
  - ORAL DISCOMFORT [None]
  - PAIN IN EXTREMITY [None]
  - PENILE HAEMORRHAGE [None]
  - PLATELET COUNT DECREASED [None]
  - PSORIASIS [None]
  - PSORIATIC ARTHROPATHY [None]
  - QUALITY OF LIFE DECREASED [None]
  - TINEA INFECTION [None]
  - VISUAL IMPAIRMENT [None]
  - VOMITING [None]
